FAERS Safety Report 10099991 (Version 2)
Quarter: 2014Q2

REPORT INFORMATION
  Report Type: Spontaneous
  Country: US (occurrence: US)
  Receive Date: 20140423
  Receipt Date: 20140515
  Transmission Date: 20141212
  Serious: Yes (Life-Threatening, Other)
  Sender: FDA-Public Use
  Company Number: US-BRISTOL-MYERS SQUIBB COMPANY-20624896

PATIENT
  Age: 53 Year
  Sex: Male
  Weight: 99.77 kg

DRUGS (5)
  1. ELIQUIS [Suspect]
     Indication: ATRIAL FIBRILLATION
     Dosage: ONGOING
     Dates: start: 20140128
  2. ATENOLOL [Concomitant]
  3. FINASTERIDE [Concomitant]
  4. FLECAINIDE [Concomitant]
  5. DILTIAZEM HCL [Concomitant]

REACTIONS (2)
  - Cardiac disorder [Unknown]
  - Bladder disorder [Unknown]
